FAERS Safety Report 19901805 (Version 1)
Quarter: 2021Q3

REPORT INFORMATION
  Report Type: Report from Study
  Country: None (occurrence: AR)
  Receive Date: 20210929
  Receipt Date: 20210929
  Transmission Date: 20211014
  Serious: Yes (Other)
  Sender: FDA-Public Use
  Company Number: AR-ABBVIE-21K-007-4066618-00

PATIENT
  Age: 62 Year
  Sex: Female

DRUGS (2)
  1. HUMIRA [Suspect]
     Active Substance: ADALIMUMAB
     Indication: RHEUMATOID ARTHRITIS
     Route: 058
     Dates: start: 20191127, end: 202105
  2. HUMIRA [Suspect]
     Active Substance: ADALIMUMAB
     Route: 058
     Dates: start: 2021

REACTIONS (6)
  - Scleritis [Not Recovered/Not Resolved]
  - Inflammation [Unknown]
  - Glaucoma [Not Recovered/Not Resolved]
  - Cataract [Not Recovered/Not Resolved]
  - Eyelid ptosis [Unknown]
  - Intraocular pressure test abnormal [Not Recovered/Not Resolved]

NARRATIVE: CASE EVENT DATE: 202105
